FAERS Safety Report 7544828 (Version 5)
Quarter: 2012Q4

REPORT INFORMATION
  Report Type: Report from Study
  Country: GB (occurrence: GB)
  Receive Date: 20100818
  Receipt Date: 20120830
  Transmission Date: 20130627
  Serious: Yes (Hospitalization, Other)
  Sender: FDA-Public Use
  Company Number: GB-TEVA-244624ISR

PATIENT
  Age: 57 Year
  Sex: Male

DRUGS (13)
  1. PREDNISOLONE [Suspect]
     Indication: PROSTATE CANCER METASTATIC
     Route: 048
     Dates: start: 20100428
  2. ABIRATERONE ACETATE [Suspect]
     Indication: PROSTATE CANCER METASTATIC
     Route: 048
     Dates: start: 20100428, end: 20100601
  3. PREDNISOLONE ACETATE [Suspect]
     Indication: PROSTATE CANCER METASTATIC
     Route: 048
     Dates: start: 20100428
  4. GOSERELIN [Concomitant]
     Indication: BLOOD TESTOSTERONE ABNORMAL
     Route: 042
     Dates: start: 20100409
  5. IBUPROFEN [Concomitant]
     Indication: ANALGESIC THERAPY
     Route: 048
     Dates: start: 20090101
  6. PARACETAMOL [Concomitant]
     Indication: CANCER PAIN
     Route: 048
     Dates: start: 200901
  7. SIMVASTATIN [Concomitant]
     Indication: HYPERCHOLESTEROLAEMIA
     Dosage: 40 Milligram Daily;
     Route: 048
     Dates: start: 201001
  8. BENDROFLUMETHIAZIDE [Concomitant]
     Indication: HYPERTENSION
     Dosage: 2.5 Milligram Daily;
     Route: 048
     Dates: start: 201001
  9. MORPHINE SULFATE [Concomitant]
     Indication: CANCER PAIN
     Route: 048
     Dates: start: 20100526
  10. DICLOFENAC [Concomitant]
     Indication: CANCER PAIN
     Dosage: 150 Milligram Daily;
     Route: 048
     Dates: start: 20100526
  11. OMEPRAZOLE [Concomitant]
     Indication: PROPHYLAXIS AGAINST GASTROINTESTINAL ULCER
     Dosage: 40 Milligram Daily;
     Route: 048
     Dates: start: 20100526
  12. DORBANEX [Concomitant]
     Indication: CONSTIPATION PROPHYLAXIS
     Route: 048
     Dates: start: 20100526
  13. CLARITHROMYCIN [Concomitant]
     Indication: LOWER RESPIRATORY TRACT INFECTION
     Dosage: 1000 Milligram Daily;
     Route: 048
     Dates: start: 20100608

REACTIONS (3)
  - Pleural effusion [Recovered/Resolved]
  - Lower respiratory tract infection [None]
  - Atelectasis [None]
